FAERS Safety Report 5020703-8 (Version None)
Quarter: 2006Q2

REPORT INFORMATION
  Report Type: 
  Country: None (occurrence: None)
  Receive Date: 20060602
  Receipt Date: 20060523
  Transmission Date: 20061013
  Serious: Yes (Hospitalization)
  Sender: FDA-Public Use
  Company Number: 2006BH010266

PATIENT
  Sex: Female

DRUGS (1)
  1. MORPHINE SULFATE [Suspect]
     Indication: PAIN
     Dosage: INTH
     Route: 037

REACTIONS (4)
  - ABASIA [None]
  - BURNING SENSATION [None]
  - HYPOAESTHESIA [None]
  - PAIN [None]
